FAERS Safety Report 5529713-5 (Version None)
Quarter: 2007Q4

REPORT INFORMATION
  Report Type: 
  Country: None (occurrence: None)
  Receive Date: 20071129
  Receipt Date: 20071121
  Transmission Date: 20080405
  Serious: Yes (Hospitalization)
  Sender: FDA-Public Use
  Company Number: JP-ABBOTT-07P-087-0425626-00

PATIENT
  Age: 57 Year
  Sex: Male
  Weight: 69 kg

DRUGS (12)
  1. CLARITH TABLETS [Suspect]
     Indication: NASOPHARYNGITIS
     Route: 048
     Dates: start: 20071025, end: 20071026
  2. COMBINATION COLD REMEDY [Concomitant]
     Indication: NASOPHARYNGITIS
     Route: 048
     Dates: start: 20071020, end: 20071024
  3. COMBINATION COLD REMEDY [Concomitant]
     Route: 048
     Dates: start: 20071025, end: 20071026
  4. PARACETAMOL [Concomitant]
     Indication: NASOPHARYNGITIS
     Route: 048
     Dates: start: 20071020, end: 20071024
  5. FEXOFENADINE HYDROCHLORIDE [Concomitant]
     Indication: NASOPHARYNGITIS
     Route: 048
     Dates: start: 20071020, end: 20071024
  6. VALPROATE SODIUM [Concomitant]
     Indication: EPILEPSY
     Route: 048
     Dates: start: 19890101, end: 20071026
  7. VALPROATE SODIUM [Concomitant]
     Route: 048
     Dates: start: 20071027
  8. CLONAZEPAM [Concomitant]
     Indication: EPILEPSY
     Route: 048
     Dates: start: 19890101, end: 20071026
  9. CLONAZEPAM [Concomitant]
     Route: 048
     Dates: start: 20071027
  10. LOXOPROFEN SODIUM HYDRATE [Concomitant]
     Indication: BACK PAIN
     Route: 048
     Dates: start: 20071001, end: 20071026
  11. REBAMIPIDE [Concomitant]
     Indication: BACK PAIN
     Route: 048
     Dates: start: 20071001, end: 20071026
  12. L-CARBOCISTEINE [Concomitant]
     Indication: NASOPHARYNGITIS
     Route: 048
     Dates: start: 20071025, end: 20071026

REACTIONS (2)
  - CONVULSION [None]
  - LOSS OF CONSCIOUSNESS [None]
